FAERS Safety Report 14205803 (Version 4)
Quarter: 2018Q1

REPORT INFORMATION
  Report Type: Spontaneous
  Country: IT (occurrence: IT)
  Receive Date: 20171120
  Receipt Date: 20180125
  Transmission Date: 20180508
  Serious: Yes (Death, Hospitalization)
  Sender: FDA-Public Use
  Company Number: IT-SA-2017SA227660

PATIENT
  Age: 38 Year
  Sex: Female
  Weight: 55 kg

DRUGS (1)
  1. LEMTRADA [Suspect]
     Active Substance: ALEMTUZUMAB
     Indication: MULTIPLE SCLEROSIS
     Dosage: TOTAL DOSE: 60 MG/CYCLE
     Route: 041
     Dates: start: 20171023, end: 20171027

REACTIONS (7)
  - Dyspnoea [Fatal]
  - White blood cell count decreased [Unknown]
  - Influenza like illness [Fatal]
  - Pyrexia [Fatal]
  - Bronchopulmonary aspergillosis [Fatal]
  - Cyanosis [Fatal]
  - Lymphocyte count decreased [Unknown]

NARRATIVE: CASE EVENT DATE: 201711
